FAERS Safety Report 18648708 (Version 1)
Quarter: 2020Q4

REPORT INFORMATION
  Report Type: Spontaneous
  Country: US (occurrence: US)
  Receive Date: 20201222
  Receipt Date: 20201222
  Transmission Date: 20210114
  Serious: No
  Sender: FDA-Public Use
  Company Number: US-ELI_LILLY_AND_COMPANY-US202011013845

PATIENT
  Age: 68 Year
  Sex: Male

DRUGS (1)
  1. BAMLANIVIMAB 700MG [Suspect]
     Active Substance: BAMLANIVIMAB
     Indication: COVID-19
     Dosage: UNK
     Route: 065
     Dates: start: 20201125, end: 20201125

REACTIONS (2)
  - Dermatitis contact [Not Recovered/Not Resolved]
  - Skin burning sensation [Not Recovered/Not Resolved]
